FAERS Safety Report 7100386-3 (Version None)
Quarter: 2010Q4

REPORT INFORMATION
  Report Type: 
  Country: None (occurrence: None)
  Receive Date: 20101112
  Receipt Date: 20101102
  Transmission Date: 20110411
  Serious: Yes (Hospitalization, Disabling)
  Sender: FDA-Public Use
  Company Number: PHHY2010FR73846

PATIENT
  Sex: Male
  Weight: 56 kg

DRUGS (8)
  1. TASIGNA [Suspect]
     Indication: CHRONIC MYELOID LEUKAEMIA
     Dosage: 400 MG, BID
     Dates: start: 20080924
  2. TAREG [Concomitant]
     Indication: HYPERTENSION
     Dosage: 80 MG, UNK
     Dates: start: 19990101
  3. LEXOMIL [Concomitant]
     Dosage: 0.75 DF QD
  4. KARDEGIC [Concomitant]
     Indication: ARTERIAL DISORDER
     Dosage: 75 MG, UNK
     Dates: start: 20091101
  5. TAHOR [Concomitant]
     Indication: ARTERIAL DISORDER
     Dosage: 80 MG, UNK
     Dates: start: 20091101
  6. PLAVIX [Concomitant]
     Indication: ARTERIAL DISORDER
     Dosage: 75 MG, UNK
     Dates: start: 20091101
  7. NEXIUM [Concomitant]
     Indication: OESOPHAGITIS
     Dosage: 40 MG, UNK
     Dates: start: 20091101
  8. ARANESP [Concomitant]

REACTIONS (10)
  - ANGIOPLASTY [None]
  - ARTERIAL BYPASS OPERATION [None]
  - CAROTID ARTERY STENOSIS [None]
  - CAROTID ENDARTERECTOMY [None]
  - DYSLIPIDAEMIA [None]
  - ENDARTERECTOMY [None]
  - ISCHAEMIC ULCER [None]
  - OSTEONECROSIS [None]
  - PERIPHERAL ARTERIAL OCCLUSIVE DISEASE [None]
  - PERIPHERAL ISCHAEMIA [None]
